FAERS Safety Report 9288796 (Version 1)
Quarter: 2013Q2

REPORT INFORMATION
  Report Type: Spontaneous
  Country: US (occurrence: US)
  Receive Date: 20130514
  Receipt Date: 20130514
  Transmission Date: 20140414
  Serious: No
  Sender: FDA-Public Use
  Company Number: US-ASTRAZENECA-2013SE30645

PATIENT
  Age: 59 Year
  Sex: Male
  Weight: 81.6 kg

DRUGS (4)
  1. NEXIUM [Suspect]
     Indication: DYSPEPSIA
     Route: 048
     Dates: start: 2008
  2. PRILOSEC OTC [Suspect]
     Indication: DYSPEPSIA
     Route: 048
  3. SIMVASTATIN [Concomitant]
  4. ASA [Concomitant]

REACTIONS (3)
  - Gynaecomastia [Unknown]
  - Off label use [Unknown]
  - Intentional drug misuse [Unknown]
